FAERS Safety Report 10835724 (Version 1)
Quarter: 2015Q1

REPORT INFORMATION
  Report Type: Report from Study
  Country: US (occurrence: US)
  Receive Date: 20150219
  Receipt Date: 20150219
  Transmission Date: 20150721
  Serious: No
  Sender: FDA-Public Use
  Company Number: US-ABBVIE-14P-163-1201499-00

PATIENT
  Age: 41 Year
  Sex: Male

DRUGS (5)
  1. BLOOD PRESSURE PILL [Concomitant]
     Indication: BLOOD PRESSURE
  2. UNKNOWN MEDICATION [Concomitant]
     Active Substance: UNSPECIFIED INGREDIENT
     Indication: PSORIASIS
  3. HIGH CHOLESTEROL PILL [Concomitant]
     Indication: BLOOD CHOLESTEROL INCREASED
     Dosage: PILL
  4. HUMIRA [Suspect]
     Active Substance: ADALIMUMAB
     Dates: start: 20140212, end: 20140212
  5. HUMIRA [Suspect]
     Active Substance: ADALIMUMAB
     Indication: PSORIASIS
     Dates: start: 20140205, end: 20140205

REACTIONS (2)
  - Drug dose omission [Unknown]
  - Injection site bruising [Recovered/Resolved]

NARRATIVE: CASE EVENT DATE: 20140206
